FAERS Safety Report 9115197 (Version 3)
Quarter: 2013Q2

REPORT INFORMATION
  Report Type: Spontaneous
  Country: IT (occurrence: IT)
  Receive Date: 20130225
  Receipt Date: 20130405
  Transmission Date: 20140414
  Serious: Yes (Life-Threatening)
  Sender: FDA-Public Use
  Company Number: -SANOFI-AVENTIS-2013SA016825

PATIENT
  Age: 49 Year
  Sex: Female

DRUGS (2)
  1. ARAVA [Suspect]
     Indication: POLYARTHRITIS
     Route: 048
     Dates: start: 20130131, end: 20130214
  2. AIRTAL [Concomitant]
     Indication: POLYARTHRITIS
     Route: 048
     Dates: start: 20130131, end: 20130214

REACTIONS (3)
  - Chest discomfort [Not Recovered/Not Resolved]
  - Pruritus generalised [Not Recovered/Not Resolved]
  - Hypertransaminasaemia [Not Recovered/Not Resolved]
